FAERS Safety Report 20921370 (Version 1)
Quarter: 2022Q2

REPORT INFORMATION
  Report Type: Spontaneous
  Country: US (occurrence: US)
  Receive Date: 20220606
  Receipt Date: 20220606
  Transmission Date: 20220720
  Serious: Yes (Other)
  Sender: FDA-Public Use
  Company Number: US-BRISTOL-MYERS SQUIBB COMPANY-2022-035932

PATIENT
  Age: 75 Year
  Sex: Female

DRUGS (1)
  1. REVLIMID [Suspect]
     Active Substance: LENALIDOMIDE
     Indication: Myelodysplastic syndrome
     Dosage: 21 CAPSULES
     Route: 065
     Dates: start: 2022

REACTIONS (6)
  - Abdominal pain upper [Unknown]
  - Headache [Unknown]
  - Pruritus [Unknown]
  - Anaemia [Unknown]
  - Thrombocytosis [Unknown]
  - White blood cell count decreased [Unknown]
